FAERS Safety Report 6068269-8 (Version None)
Quarter: 2009Q1

REPORT INFORMATION
  Report Type: 
  Country: None (occurrence: None)
  Receive Date: 20090206
  Receipt Date: 20090128
  Transmission Date: 20090719
  Serious: Yes (Hospitalization)
  Sender: FDA-Public Use
  Company Number: PHHY2008JP28733

PATIENT
  Sex: Male

DRUGS (12)
  1. COMTAN [Suspect]
     Indication: PARKINSON'S DISEASE
     Dosage: 100 MG
     Route: 048
     Dates: start: 20080924, end: 20081112
  2. LEVODOPA [Suspect]
     Dosage: 300 MG
     Route: 048
     Dates: end: 20081112
  3. ARTANE [Concomitant]
     Indication: PARKINSON'S DISEASE
     Dosage: 6 MG
     Route: 048
     Dates: start: 20040101
  4. CARBIDOPA AND LEVODOPA [Concomitant]
     Indication: PARKINSON'S DISEASE
     Dosage: UNK
     Dates: start: 20060927
  5. EXCEGRAN [Concomitant]
     Indication: PARKINSON'S DISEASE
     Dosage: 100 MG
     Dates: start: 20040101
  6. PAXIL [Concomitant]
     Indication: PANIC DISORDER
     Dosage: 30 MG
     Dates: start: 20081106
  7. LASIX [Concomitant]
     Indication: CARDIAC FAILURE CHRONIC
     Dosage: 20 MG
     Dates: start: 20060101
  8. WARFARIN SODIUM [Concomitant]
     Indication: CARDIAC FAILURE CHRONIC
     Dosage: 2 MG
  9. BLOPRESS [Concomitant]
     Indication: CARDIAC FAILURE CHRONIC
     Dosage: 4 MG
  10. ALDACTONE [Concomitant]
     Indication: CARDIAC FAILURE CHRONIC
     Dosage: 25 MG
  11. ARTIST [Concomitant]
     Indication: CARDIAC FAILURE CHRONIC
     Dosage: 2.5 MG
  12. NITOROL [Concomitant]
     Indication: CARDIAC FAILURE CHRONIC
     Dosage: 20 MG

REACTIONS (4)
  - ANXIETY [None]
  - HYPOAESTHESIA [None]
  - PANIC DISORDER [None]
  - SUICIDAL IDEATION [None]
